FAERS Safety Report 23350739 (Version 1)
Quarter: 2023Q4

REPORT INFORMATION
  Report Type: Spontaneous
  Country: US (occurrence: None)
  Receive Date: 20231228
  Receipt Date: 20231228
  Transmission Date: 20240110
  Serious: Yes (Death)
  Sender: FDA-Public Use
  Company Number: None

PATIENT
  Age: 58 Year
  Sex: Male
  Weight: 87 kg

DRUGS (4)
  1. TICAGRELOR [Suspect]
     Active Substance: TICAGRELOR
     Indication: Acute myocardial infarction
     Dosage: FREQUENCY : TWICE A DAY;?
     Route: 048
     Dates: start: 20231218, end: 20231220
  2. ASPIRIN [Suspect]
     Active Substance: ASPIRIN
     Dates: end: 20231220
  3. ATORVASTATIN [Concomitant]
     Active Substance: ATORVASTATIN
     Dates: end: 20231224
  4. METOPROLOL [Concomitant]
     Active Substance: METOPROLOL
     Dates: start: 20231218, end: 20231220

REACTIONS (5)
  - Brain injury [None]
  - Haemorrhage intracranial [None]
  - Brain compression [None]
  - Cerebral mass effect [None]
  - Brain hypoxia [None]

NARRATIVE: CASE EVENT DATE: 20231220
